FAERS Safety Report 6913977-7 (Version None)
Quarter: 2010Q3

REPORT INFORMATION
  Report Type: 
  Country: None (occurrence: None)
  Receive Date: 20100809
  Receipt Date: 20100725
  Transmission Date: 20110219
  Serious: Yes (Hospitalization)
  Sender: FDA-Public Use
  Company Number: PHHY2010JP48916

PATIENT
  Age: 54 Year
  Sex: Male

DRUGS (3)
  1. BASILIXIMAB [Suspect]
     Indication: RENAL TRANSPLANT
     Dosage: UNK
  2. TACROLIMUS [Concomitant]
     Indication: RENAL TRANSPLANT
  3. ANTIHYPERTENSIVES [Concomitant]
     Indication: BLOOD PRESSURE INCREASED

REACTIONS (22)
  - ABDOMINAL PAIN [None]
  - ALANINE AMINOTRANSFERASE INCREASED [None]
  - ANGIOGRAM [None]
  - ARTERIAL CATHETERISATION [None]
  - ASCITES [None]
  - ASPARTATE AMINOTRANSFERASE INCREASED [None]
  - BLOOD AMYLASE INCREASED [None]
  - BLOOD LACTATE DEHYDROGENASE INCREASED [None]
  - BLOOD PRESSURE SYSTOLIC DECREASED [None]
  - COLOSTOMY [None]
  - GASTROINTESTINAL NECROSIS [None]
  - GASTROINTESTINAL STOMA COMPLICATION [None]
  - INTESTINAL ANASTOMOSIS [None]
  - INTESTINAL ISCHAEMIA [None]
  - INTESTINAL RESECTION [None]
  - JEJUNOSTOMY [None]
  - LAPAROTOMY [None]
  - METABOLIC ACIDOSIS [None]
  - NECROTISING COLITIS [None]
  - PORTAL VENOUS GAS [None]
  - PYREXIA [None]
  - WHITE BLOOD CELL COUNT INCREASED [None]
